FAERS Safety Report 19230884 (Version 2)
Quarter: 2021Q2

REPORT INFORMATION
  Report Type: Spontaneous
  Country: JP (occurrence: JP)
  Receive Date: 20210507
  Receipt Date: 20210518
  Transmission Date: 20210717
  Serious: Yes (Hospitalization)
  Sender: FDA-Public Use
  Company Number: JP-ABBVIE-19K-087-2874526-00

PATIENT
  Age: 55 Year
  Sex: Male

DRUGS (2)
  1. DUODOPA [Suspect]
     Active Substance: CARBIDOPA\LEVODOPA
     Indication: PARKINSON^S DISEASE
     Route: 050
     Dates: start: 20190131, end: 201902
  2. DUODOPA [Suspect]
     Active Substance: CARBIDOPA\LEVODOPA
     Route: 050
     Dates: start: 20190305

REACTIONS (10)
  - Device occlusion [Recovered/Resolved]
  - Dysaesthesia [Unknown]
  - Malaise [Recovered/Resolved]
  - Device alarm issue [Recovered/Resolved]
  - Fall [Unknown]
  - Hallucination [Unknown]
  - Malaise [Unknown]
  - Malaise [Recovered/Resolved]
  - Drug ineffective [Unknown]
  - Stoma site pain [Unknown]

NARRATIVE: CASE EVENT DATE: 2019
